FAERS Safety Report 5210312-X (Version None)
Quarter: 2007Q1

REPORT INFORMATION
  Report Type: 
  Country: None (occurrence: None)
  Receive Date: 20070111
  Receipt Date: 20070103
  Transmission Date: 20070707
  Serious: No
  Sender: FDA-Public Use
  Company Number: 2006-150473-NL

PATIENT
  Age: 65 Year
  Sex: Male

DRUGS (4)
  1. MIRTAZAPINE [Suspect]
     Dosage: 6 MG/9 MG/12 MG/30 MG INTRAVENOUS (NOS)/INTRAVENOUS (NOS)/INTRAVENOUS (NOS)/ORAL
     Dates: start: 20051202, end: 20051203
  2. MIRTAZAPINE [Suspect]
     Dosage: 6 MG/9 MG/12 MG/30 MG INTRAVENOUS (NOS)/INTRAVENOUS (NOS)/INTRAVENOUS (NOS)/ORAL
     Dates: start: 20051204, end: 20051205
  3. MIRTAZAPINE [Suspect]
     Dosage: 6 MG/9 MG/12 MG/30 MG INTRAVENOUS (NOS)/INTRAVENOUS (NOS)/INTRAVENOUS (NOS)/ORAL
     Dates: start: 20051206, end: 20051207
  4. MIRTAZAPINE [Suspect]
     Dosage: 6 MG/9 MG/12 MG/30 MG INTRAVENOUS (NOS)/INTRAVENOUS (NOS)/INTRAVENOUS (NOS)/ORAL
     Dates: start: 20051208

REACTIONS (4)
  - BLOOD POTASSIUM INCREASED [None]
  - GAMMA-GLUTAMYLTRANSFERASE INCREASED [None]
  - HYPOTENSION [None]
  - THROMBOPHLEBITIS [None]
